FAERS Safety Report 12558944 (Version 6)
Quarter: 2016Q4

REPORT INFORMATION
  Report Type: Report from Study
  Country: US (occurrence: US)
  Receive Date: 20160715
  Receipt Date: 20161213
  Transmission Date: 20170207
  Serious: Yes (Hospitalization, Other)
  Sender: FDA-Public Use
  Company Number: US-AMGEN-USASL2016089922

PATIENT
  Age: 66 Year
  Sex: Male

DRUGS (5)
  1. HUMIRA [Concomitant]
     Active Substance: ADALIMUMAB
     Dosage: UNK
     Dates: start: 201212
  2. OTEZLA [Concomitant]
     Active Substance: APREMILAST
     Dosage: UNK
     Dates: start: 2016, end: 2016
  3. ENBREL [Suspect]
     Active Substance: ETANERCEPT
     Dosage: UNK
     Route: 065
     Dates: start: 2016
  4. ENBREL [Suspect]
     Active Substance: ETANERCEPT
     Indication: RHEUMATOID ARTHRITIS
     Dosage: UNK
     Route: 065
     Dates: start: 20030701, end: 201411
  5. ENBREL [Suspect]
     Active Substance: ETANERCEPT
     Indication: PSORIATIC ARTHROPATHY
     Dosage: 50 MG, QWK
     Route: 065

REACTIONS (9)
  - Cystoscopy [Unknown]
  - Blister [Unknown]
  - Peripheral vascular disorder [Unknown]
  - Wound [Unknown]
  - Post procedural sepsis [Unknown]
  - Pyogenic granuloma [Unknown]
  - Incision site haemorrhage [Unknown]
  - Impaired healing [Unknown]
  - Erythema [Unknown]

NARRATIVE: CASE EVENT DATE: 2012
